FAERS Safety Report 5967522-3 (Version None)
Quarter: 2008Q4

REPORT INFORMATION
  Report Type: 
  Country: None (occurrence: None)
  Receive Date: 20081125
  Receipt Date: 20081117
  Transmission Date: 20090506
  Serious: Yes (Hospitalization, Other)
  Sender: FDA-Public Use
  Company Number: US-PFIZER INC-2008084847

PATIENT
  Age: 75 Year
  Sex: Male
  Weight: 109 kg

DRUGS (3)
  1. TIKOSYN [Suspect]
  2. COREG [Concomitant]
  3. DRUG, UNSPECIFIED [Concomitant]

REACTIONS (2)
  - CARDIAC PACEMAKER MALFUNCTION [None]
  - STENT PLACEMENT [None]
